FAERS Safety Report 23871387 (Version 2)
Quarter: 2024Q2

REPORT INFORMATION
  Report Type: Spontaneous
  Country: US (occurrence: US)
  Receive Date: 20240519
  Receipt Date: 20240609
  Transmission Date: 20240716
  Serious: No
  Sender: FDA-Public Use
  Company Number: US-JNJFOC-20240538380

PATIENT
  Sex: Male

DRUGS (1)
  1. STELARA [Suspect]
     Active Substance: USTEKINUMAB
     Indication: Psoriasis
     Dosage: BETWEEN 90 MG AND 45 MG.
     Route: 058

REACTIONS (3)
  - Psoriasis [Unknown]
  - Product dose omission issue [Unknown]
  - Off label use [Unknown]
